FAERS Safety Report 9034394 (Version 1)
Quarter: 2013Q1

REPORT INFORMATION
  Report Type: Spontaneous
  Country: CN (occurrence: None)
  Receive Date: 20130111
  Receipt Date: 20130111
  Transmission Date: 20140127
  Serious: Yes (Hospitalization, Other)
  Sender: FDA-Public Use
  Company Number: 2013P1000149

PATIENT
  Age: 27 Year
  Sex: Female

DRUGS (1)
  1. PHENOBARBITAL [Suspect]
     Indication: EPILEPSY
     Dosage: 100 MG; HS

REACTIONS (9)
  - Leukaemoid reaction [None]
  - Drug hypersensitivity [None]
  - Pyrexia [None]
  - Myalgia [None]
  - Mental disorder [None]
  - Aspartate aminotransferase increased [None]
  - Alanine aminotransferase increased [None]
  - Blood bilirubin increased [None]
  - Epilepsy [None]
